FAERS Safety Report 9786448 (Version 5)
Quarter: 2014Q2

REPORT INFORMATION
  Report Type: Spontaneous
  Country: US (occurrence: US)
  Receive Date: 20131227
  Receipt Date: 20140602
  Transmission Date: 20141212
  Serious: Yes (Hospitalization)
  Sender: FDA-Public Use
  Company Number: US-009507513-1312USA010433

PATIENT
  Sex: Male

DRUGS (2)
  1. PROPECIA [Suspect]
     Indication: ANDROGENETIC ALOPECIA
     Dosage: 1 MG, QD
     Route: 048
     Dates: start: 20090608, end: 20100831
  2. PROPECIA [Suspect]
     Dosage: UNK
     Route: 048
     Dates: end: 20101117

REACTIONS (14)
  - Appendicectomy [Unknown]
  - Sexual dysfunction [Not Recovered/Not Resolved]
  - Erectile dysfunction [Not Recovered/Not Resolved]
  - Libido decreased [Not Recovered/Not Resolved]
  - Hypogonadism male [Not Recovered/Not Resolved]
  - Neck pain [Not Recovered/Not Resolved]
  - Blood pressure increased [Unknown]
  - Androgen deficiency [Unknown]
  - Malaise [Unknown]
  - Premature ejaculation [Not Recovered/Not Resolved]
  - Cervical radiculopathy [Unknown]
  - Intervertebral disc protrusion [Unknown]
  - Dyspnoea [Unknown]
  - Oral herpes [Unknown]
